FAERS Safety Report 6242696-8 (Version None)
Quarter: 2009Q2

REPORT INFORMATION
  Report Type: 
  Country: None (occurrence: None)
  Receive Date: 20090624
  Receipt Date: 20090610
  Transmission Date: 20091009
  Serious: Yes (Other)
  Sender: FDA-Public Use
  Company Number: IN-JNJFOC-20090606743

PATIENT
  Age: 34 Year
  Sex: Male

DRUGS (4)
  1. RISPERIDONE [Suspect]
     Route: 065
  2. RISPERIDONE [Suspect]
     Indication: PSYCHOTIC DISORDER
     Route: 065
  3. IRON [Concomitant]
     Dosage: TREATED FOR 5 DAYS
     Route: 051
  4. IRON [Concomitant]
     Route: 048

REACTIONS (3)
  - CONVULSION [None]
  - HYPONATRAEMIA [None]
  - VOMITING [None]
